FAERS Safety Report 13732711 (Version 1)
Quarter: 2017Q3

REPORT INFORMATION
  Report Type: Spontaneous
  Country: US (occurrence: US)
  Receive Date: 20170707
  Receipt Date: 20170707
  Transmission Date: 20171127
  Serious: Yes (Hospitalization)
  Sender: FDA-Public Use
  Company Number: US-ROCHE-1259080

PATIENT
  Age: 38 Year
  Sex: Female

DRUGS (3)
  1. DOCETAXEL. [Concomitant]
     Active Substance: DOCETAXEL
     Indication: BREAST CANCER
     Route: 065
     Dates: start: 20130730
  2. TRASTUZUMAB. [Suspect]
     Active Substance: TRASTUZUMAB
     Indication: BREAST CANCER
     Route: 065
     Dates: start: 20130730
  3. PERJETA [Suspect]
     Active Substance: PERTUZUMAB
     Indication: BREAST CANCER
     Route: 065
     Dates: start: 20130730

REACTIONS (7)
  - Candida infection [Unknown]
  - Febrile neutropenia [Not Recovered/Not Resolved]
  - Pain [Unknown]
  - Influenza like illness [Unknown]
  - Arthralgia [Unknown]
  - Rash [Unknown]
  - Body temperature increased [Unknown]

NARRATIVE: CASE EVENT DATE: 20130802
